FAERS Safety Report 11806779 (Version 2)
Quarter: 2016Q1

REPORT INFORMATION
  Report Type: Other
  Country: IN (occurrence: IN)
  Receive Date: 20151207
  Receipt Date: 20160105
  Transmission Date: 20160525
  Serious: Yes (Death, Other)
  Sender: FDA-Public Use
  Company Number: IN-ASTELLAS-2015US045605

PATIENT
  Age: 45 Year
  Sex: Male

DRUGS (7)
  1. AMBISOME [Suspect]
     Active Substance: AMPHOTERICIN B
     Indication: MUCORMYCOSIS
     Route: 042
  2. GANCICLOVIR. [Concomitant]
     Active Substance: GANCICLOVIR
     Indication: MUCORMYCOSIS
     Route: 065
  3. MYCOPHENOLATE [Concomitant]
     Active Substance: MYCOPHENOLIC ACID
     Indication: RENAL TRANSPLANT
     Route: 065
  4. CYCLOSPORIN [Concomitant]
     Active Substance: CYCLOSPORINE
     Indication: RENAL TRANSPLANT
     Dosage: UNK UNK, UNKNOWN FREQ.
     Route: 065
  5. RITUXIMAB [Concomitant]
     Active Substance: RITUXIMAB
     Indication: RENAL TRANSPLANT
     Route: 065
  6. IMMUNGLOBULIN [Concomitant]
     Active Substance: HUMAN IMMUNOGLOBULIN G
     Indication: PRODUCT USED FOR UNKNOWN INDICATION
     Route: 042
  7. TACROLIMUS. [Suspect]
     Active Substance: TACROLIMUS
     Indication: RENAL TRANSPLANT
     Dosage: 0.05 MG/KG, ONCE DAILY
     Route: 065

REACTIONS (6)
  - Mucormycosis [Fatal]
  - Thrombotic microangiopathy [Unknown]
  - Drug ineffective [Fatal]
  - Off label use [Unknown]
  - Seizure [Unknown]
  - Cytomegalovirus infection [Unknown]
